FAERS Safety Report 7827763-7 (Version None)
Quarter: 2011Q4

REPORT INFORMATION
  Report Type: 
  Country: None (occurrence: None)
  Receive Date: 20111020
  Receipt Date: 20111012
  Transmission Date: 20120403
  Serious: Yes (Other)
  Sender: FDA-Public Use
  Company Number: US-SANOFI-AVENTIS-2011SA067948

PATIENT
  Sex: Female

DRUGS (1)
  1. MULTAQ [Suspect]
     Route: 048
     Dates: start: 20100101, end: 20110914

REACTIONS (2)
  - PATHOLOGICAL FRACTURE [None]
  - INTERSTITIAL LUNG DISEASE [None]
